FAERS Safety Report 6002615-6 (Version None)
Quarter: 2008Q4

REPORT INFORMATION
  Report Type: 
  Country: None (occurrence: None)
  Receive Date: 20081215
  Receipt Date: 20071127
  Transmission Date: 20090506
  Serious: No
  Sender: FDA-Public Use
  Company Number: US-AMGEN-KDL253293

PATIENT
  Sex: Female

DRUGS (4)
  1. ENBREL [Suspect]
     Indication: RHEUMATOID ARTHRITIS
     Route: 058
     Dates: start: 20040129
  2. ARAVA [Concomitant]
  3. UNSPECIFIED THYROID MEDICATION [Concomitant]
  4. ESTROGENIC SUBSTANCE [Concomitant]

REACTIONS (4)
  - EYE IRRITATION [None]
  - RASH MACULO-PAPULAR [None]
  - RASH PRURITIC [None]
  - VISION BLURRED [None]
